FAERS Safety Report 14724010 (Version 12)
Quarter: 2021Q3

REPORT INFORMATION
  Report Type: Spontaneous
  Country: US (occurrence: US)
  Receive Date: 20180405
  Receipt Date: 20210922
  Transmission Date: 20211014
  Serious: Yes (Death, Hospitalization)
  Sender: FDA-Public Use
  Company Number: US-VIFOR (INTERNATIONAL) INC.-VIT-2018-02843

PATIENT
  Age: 41 Year
  Sex: Male
  Weight: 155 kg

DRUGS (36)
  1. AMITRIPTYLINE HCL [Concomitant]
     Active Substance: AMITRIPTYLINE
  2. CLOBETASOL PROPIONATE. [Concomitant]
     Active Substance: CLOBETASOL PROPIONATE
  3. KETOCONAZOLE. [Concomitant]
     Active Substance: KETOCONAZOLE
  4. VELTASSA [Suspect]
     Active Substance: PATIROMER
     Indication: HYPERKALAEMIA
     Route: 048
     Dates: start: 20170802
  5. VELTASSA [Suspect]
     Active Substance: PATIROMER
     Route: 048
     Dates: start: 20170801
  6. ANUSOL?HC [Concomitant]
     Active Substance: HYDROCORTISONE
  7. CALCIUM ACETATE. [Concomitant]
     Active Substance: CALCIUM ACETATE
  8. LORAZEPAM. [Concomitant]
     Active Substance: LORAZEPAM
  9. PREPARATION H NOS [Concomitant]
     Active Substance: COCOA BUTTER\PETROLATUM\PHENYLEPHRINE HYDROCHLORIDE\PHENYLEPHRINE HYDROCHLORIDE OR MINERAL OIL
  10. VENLAFAXINE HCL [Concomitant]
     Active Substance: VENLAFAXINE HYDROCHLORIDE
  11. ACETAMINOPHEN. [Concomitant]
     Active Substance: ACETAMINOPHEN
  12. AURYXIA [Concomitant]
     Active Substance: TETRAFERRIC TRICITRATE DECAHYDRATE
  13. BETAMETHASONE VALERATE. [Concomitant]
     Active Substance: BETAMETHASONE VALERATE
  14. VITAMIN D2 [Concomitant]
     Active Substance: ERGOCALCIFEROL
  15. AQUANIL HC [Concomitant]
     Active Substance: HYDROCORTISONE
  16. DIPHENHYDRAMINE HCL [Concomitant]
     Active Substance: DIPHENHYDRAMINE HYDROCHLORIDE
  17. MIDODRINE HCL [Concomitant]
     Active Substance: MIDODRINE HYDROCHLORIDE
  18. PANTOPRAZOLE SODIUM. [Concomitant]
     Active Substance: PANTOPRAZOLE SODIUM
  19. COLLAGENASE SANTYL [Concomitant]
     Active Substance: COLLAGENASE CLOSTRIDIUM HISTOLYTICUM
  20. VASCEPA [Concomitant]
     Active Substance: ICOSAPENT ETHYL
  21. ASPIRIN. [Concomitant]
     Active Substance: ASPIRIN
  22. CLOPIDOGREL BISULFATE. [Concomitant]
     Active Substance: CLOPIDOGREL BISULFATE
  23. DUODERM HYDROACTIVE [Concomitant]
     Active Substance: CARBOXYMETHYLCELLULOSE SODIUM\PECTIN
  24. FENOFIBRATE. [Concomitant]
     Active Substance: FENOFIBRATE
  25. METHADONE HCL [Concomitant]
     Active Substance: METHADONE HYDROCHLORIDE
  26. MILK OF MAGNESIA [Concomitant]
     Active Substance: MAGNESIUM HYDROXIDE
  27. OXYCODONE HYDROCHLORIDE. [Concomitant]
     Active Substance: OXYCODONE HYDROCHLORIDE
  28. SILVER SULFADIAZINE. [Concomitant]
     Active Substance: SILVER SULFADIAZINE
  29. VELTASSA [Suspect]
     Active Substance: PATIROMER
     Route: 048
  30. DOCUSATE SODIUM. [Concomitant]
     Active Substance: DOCUSATE SODIUM
  31. HYDROXYZINE HCL [Concomitant]
     Active Substance: HYDROXYZINE HYDROCHLORIDE
  32. VELTASSA [Suspect]
     Active Substance: PATIROMER
     Route: 048
     Dates: start: 201708, end: 20210914
  33. GAVILAX [Concomitant]
     Active Substance: POLYETHYLENE GLYCOL 3350
  34. KIONEX [Concomitant]
     Active Substance: SODIUM POLYSTYRENE SULFONATE
  35. SENSIPAR [Concomitant]
     Active Substance: CINACALCET HYDROCHLORIDE
  36. SENNA [Concomitant]
     Active Substance: SENNA LEAF\SENNOSIDES\SENNOSIDES A AND B

REACTIONS (12)
  - Vomiting [Unknown]
  - Tremor [Unknown]
  - Dysstasia [Unknown]
  - Muscle spasms [Unknown]
  - Illness [Not Recovered/Not Resolved]
  - Death [Fatal]
  - Treatment noncompliance [Not Recovered/Not Resolved]
  - Hospitalisation [Unknown]
  - No adverse event [Unknown]
  - Malaise [Not Recovered/Not Resolved]
  - Nausea [Not Recovered/Not Resolved]
  - Blood potassium increased [Recovered/Resolved]

NARRATIVE: CASE EVENT DATE: 20180227
